FAERS Safety Report 12210487 (Version 1)
Quarter: 2016Q1

REPORT INFORMATION
  Report Type: Spontaneous
  Country: US (occurrence: None)
  Receive Date: 20160324
  Receipt Date: 20160324
  Transmission Date: 20160526
  Serious: No
  Sender: FDA-Public Use
  Company Number: None

PATIENT
  Age: 46 Year
  Sex: Female
  Weight: 62.14 kg

DRUGS (5)
  1. FLAXSEED [Concomitant]
     Active Substance: FLAX SEED
  2. PROBIOTIC [Suspect]
     Active Substance: PROBIOTICS NOS
  3. COCONUT OIL [Concomitant]
     Active Substance: COCONUT OIL
  4. TRINTELLIX [Suspect]
     Active Substance: VORTIOXETINE HYDROBROMIDE
     Indication: ANXIETY
     Dosage: 20 MG/ 1 PILL DAILY ONCE DAILY TAKEN BY MOUTH
     Route: 048
     Dates: start: 20151016, end: 20160302
  5. TRINTELLIX [Suspect]
     Active Substance: VORTIOXETINE HYDROBROMIDE
     Indication: DEPRESSION
     Dosage: 20 MG/ 1 PILL DAILY ONCE DAILY TAKEN BY MOUTH
     Route: 048
     Dates: start: 20151016, end: 20160302

REACTIONS (5)
  - Female sexual dysfunction [None]
  - Constipation [None]
  - Drug ineffective [None]
  - Atrophic vulvovaginitis [None]
  - Vulvovaginal burning sensation [None]

NARRATIVE: CASE EVENT DATE: 20160302
